FAERS Safety Report 23189114 (Version 5)
Quarter: 2024Q1

REPORT INFORMATION
  Report Type: Report from Study
  Country: AT (occurrence: AT)
  Receive Date: 20231115
  Receipt Date: 20240128
  Transmission Date: 20240410
  Serious: Yes (Other)
  Sender: FDA-Public Use
  Company Number: AT-ABBVIE-5352021

PATIENT
  Sex: Female
  Weight: 53 kg

DRUGS (113)
  1. VENETOCLAX [Suspect]
     Active Substance: VENETOCLAX
     Indication: Acute myeloid leukaemia
     Dosage: 0 MILLIGRAM, STANDARD DOSAGE
     Route: 048
     Dates: start: 20230520, end: 20230525
  2. VENETOCLAX [Suspect]
     Active Substance: VENETOCLAX
     Indication: Acute myeloid leukaemia
     Dosage: 0 MILLIGRAM, CUMULATIVE
     Route: 048
     Dates: start: 20230526, end: 20230606
  3. VENETOCLAX [Suspect]
     Active Substance: VENETOCLAX
     Indication: Acute myeloid leukaemia
     Dosage: FREQUENCY TEXT: RAMP UP
     Route: 048
     Dates: start: 20230428, end: 20230428
  4. VENETOCLAX [Suspect]
     Active Substance: VENETOCLAX
     Indication: Acute myeloid leukaemia
     Dosage: FREQUENCY TEXT: RAMP UP
     Route: 048
     Dates: start: 20230427, end: 20230427
  5. VENETOCLAX [Suspect]
     Active Substance: VENETOCLAX
     Indication: Acute myeloid leukaemia
     Dosage: FREQUENCY TEXT: STANDARD DOSAGE
     Route: 048
     Dates: start: 20230429, end: 20230519
  6. CEOLAT [Concomitant]
     Indication: Product used for unknown indication
     Dosage: TIME INTERVAL: AS NECESSARY: FREQUENCY TEXT: WHEN NEEDED
     Route: 042
     Dates: start: 20230520, end: 20230520
  7. CEOLAT [Concomitant]
     Indication: Product used for unknown indication
     Dosage: FREQUENCY TEXT: DAILY?START DATE TEXT: 2
     Route: 048
     Dates: start: 20230526
  8. PERFALGAN [Concomitant]
     Active Substance: ACETAMINOPHEN
     Indication: Product used for unknown indication
     Dosage: FREQUENCY TEXT: DAILY?LAST ADMIN DATE: MAY 2023
     Route: 042
     Dates: start: 20230506
  9. PERFALGAN [Concomitant]
     Active Substance: ACETAMINOPHEN
     Indication: Product used for unknown indication
     Dosage: TIME INTERVAL: AS NECESSARY: FREQUENCY TEXT: WHEN NEEDED
     Route: 042
  10. PERFALGAN [Concomitant]
     Active Substance: ACETAMINOPHEN
     Indication: Product used for unknown indication
     Dosage: FREQUENCY TEXT: DAILY
     Route: 042
     Dates: start: 20230525, end: 20230528
  11. DEXPANTHENOL [Concomitant]
     Active Substance: DEXPANTHENOL
     Indication: Product used for unknown indication
     Dosage: DEXPANTHENOL MOUTHWASH
     Route: 062
     Dates: start: 20230420
  12. PASSEDAN [Concomitant]
     Indication: Product used for unknown indication
     Dosage: TIME INTERVAL: AS NECESSARY: FREQUENCY TEXT: WHEN NEEDED
     Route: 048
     Dates: start: 20230420
  13. FILGRASTIM [Concomitant]
     Active Substance: FILGRASTIM
     Indication: Product used for unknown indication
     Dosage: TIME INTERVAL: AS NECESSARY: LAST ADMIN DATE: JUN 2023 ?FREQUENCY TEXT: DAILY WHEN NEEDED
     Dates: start: 20230608
  14. FILGRASTIM [Concomitant]
     Active Substance: FILGRASTIM
     Indication: Product used for unknown indication
     Dosage: TIME INTERVAL: AS NECESSARY: FREQUENCY TEXT: DAILY WHEN NEEDED
     Dates: start: 20230611, end: 20230613
  15. CEFTAZIDIME [Concomitant]
     Active Substance: CEFTAZIDIME
     Indication: Product used for unknown indication
     Dosage: CEFTAZIDIM MIP?FREQUENCY TEXT: DAILY
     Dates: start: 20230521, end: 20230524
  16. METHYLPREDNISOLONE [Concomitant]
     Active Substance: METHYLPREDNISOLONE
     Indication: Product used for unknown indication
     Dosage: LAST ADMIN DATE: 14 MAY 2023?FREQUENCY TEXT: DAILY
     Dates: start: 20230513
  17. METHYLPREDNISOLONE [Concomitant]
     Active Substance: METHYLPREDNISOLONE
     Indication: Product used for unknown indication
     Dosage: LAST ADMIN DATE: 28 MAY 2023?FREQUENCY TEXT: DAILY
     Dates: start: 20230513
  18. METHYLPREDNISOLONE [Concomitant]
     Active Substance: METHYLPREDNISOLONE
     Indication: Product used for unknown indication
     Dosage: LAST ADMIN DATE: 26 MAY 2023?FREQUENCY TEXT: DAILY
     Dates: start: 20230526
  19. METHYLPREDNISOLONE [Concomitant]
     Active Substance: METHYLPREDNISOLONE
     Indication: Product used for unknown indication
     Dates: start: 20230604, end: 20230604
  20. METHYLPREDNISOLONE [Concomitant]
     Active Substance: METHYLPREDNISOLONE
     Indication: Product used for unknown indication
     Dosage: LAST ADMIN DATE: 12 JUN 2023?FREQUENCY TEXT: DAILY
     Dates: start: 20230506
  21. METHYLPREDNISOLONE [Concomitant]
     Active Substance: METHYLPREDNISOLONE
     Indication: Product used for unknown indication
     Dates: start: 20230608, end: 20230608
  22. METHYLPREDNISOLONE [Concomitant]
     Active Substance: METHYLPREDNISOLONE
     Indication: Product used for unknown indication
     Dosage: LAST ADMIN DATE: 25 MAY 2023?FREQUENCY TEXT: DAILY
     Dates: start: 20230525
  23. METHYLPREDNISOLONE [Concomitant]
     Active Substance: METHYLPREDNISOLONE
     Indication: Product used for unknown indication
     Dosage: LAST ADMIN DATE: 07 JUN 2023
     Dates: start: 20230529
  24. METHYLPREDNISOLONE [Concomitant]
     Active Substance: METHYLPREDNISOLONE
     Indication: Product used for unknown indication
     Dosage: LAST ADMIN DATE: 19 MAY 2023?FREQUENCY TEXT: DAILY
     Dates: start: 20230515
  25. ALDACTONE [Concomitant]
     Active Substance: SPIRONOLACTONE
     Indication: Product used for unknown indication
     Dosage: FREQUENCY TEXT: DAILY
     Route: 042
     Dates: start: 20230604
  26. DEXAMETHASONE [Concomitant]
     Active Substance: DEXAMETHASONE
     Indication: Product used for unknown indication
     Dosage: FREQUENCY TEXT: DAILY
     Route: 048
     Dates: start: 20230609
  27. Dalacin [Concomitant]
     Indication: Product used for unknown indication
     Dosage: TIME INTERVAL: 0.33333333 DAYS: FREQUENCY TEXT: 3 TIMES PER DAY
     Dates: start: 20230424, end: 20230503
  28. ACYCLOVIR [Concomitant]
     Active Substance: ACYCLOVIR
     Indication: Product used for unknown indication
     Dosage: TIME INTERVAL: AS NECESSARY: FREQUENCY TEXT: WHEN NEEDED?ACICLOBENE CREME
     Route: 062
     Dates: start: 20230430
  29. ONDANSETRON HYDROCHLORIDE [Concomitant]
     Active Substance: ONDANSETRON HYDROCHLORIDE
     Indication: Product used for unknown indication
     Dosage: 1A ONDANSAN?FREQUENCY TEXT: DAILY
     Dates: start: 20230513, end: 20230513
  30. ONDANSETRON HYDROCHLORIDE [Concomitant]
     Active Substance: ONDANSETRON HYDROCHLORIDE
     Indication: Product used for unknown indication
     Dosage: 1A ONDANSAN?FREQUENCY TEXT: DAILY
     Dates: start: 20230505, end: 20230505
  31. ONDANSETRON HYDROCHLORIDE [Concomitant]
     Active Substance: ONDANSETRON HYDROCHLORIDE
     Indication: Product used for unknown indication
     Dosage: 1A ONDANSAN?FREQUENCY TEXT: DAILY
     Dates: start: 20230611, end: 20230611
  32. ONDANSETRON HYDROCHLORIDE [Concomitant]
     Active Substance: ONDANSETRON HYDROCHLORIDE
     Indication: Product used for unknown indication
     Dosage: 1A ONDANSAN?FREQUENCY TEXT: DAILY
     Dates: start: 20230609, end: 20230609
  33. SULFAMETROLE\TRIMETHOPRIM [Concomitant]
     Active Substance: SULFAMETROLE\TRIMETHOPRIM
     Indication: Product used for unknown indication
     Dosage: 1600/320 MG?FREQUENCY TEXT: 2 WEEKLY
     Route: 048
     Dates: start: 20230501
  34. TENORMIN [Concomitant]
     Active Substance: ATENOLOL
     Indication: Product used for unknown indication
     Route: 048
  35. POLYETHYLENE GLYCOL 3350\POTASSIUM CHLORIDE\SODIUM BICARBONATE\SODIUM [Concomitant]
     Active Substance: POLYETHYLENE GLYCOL 3350\POTASSIUM CHLORIDE\SODIUM BICARBONATE\SODIUM CHLORIDE
     Indication: Product used for unknown indication
     Dosage: FREQUENCY TEXT: DAILY
     Route: 048
     Dates: start: 20230526
  36. POLYETHYLENE GLYCOL 3350\POTASSIUM CHLORIDE\SODIUM BICARBONATE\SODIUM [Concomitant]
     Active Substance: POLYETHYLENE GLYCOL 3350\POTASSIUM CHLORIDE\SODIUM BICARBONATE\SODIUM CHLORIDE
     Indication: Product used for unknown indication
     Dosage: TIME INTERVAL: AS NECESSARY: FREQUENCY TEXT: WHEN NEEDED
     Route: 048
     Dates: start: 20230428, end: 20230428
  37. EUTHYROX [Concomitant]
     Active Substance: LEVOTHYROXINE SODIUM
     Indication: Product used for unknown indication
     Dosage: FREQUENCY TEXT: DAILY
     Route: 048
     Dates: start: 20230517, end: 20230521
  38. EUTHYROX [Concomitant]
     Active Substance: LEVOTHYROXINE SODIUM
     Indication: Product used for unknown indication
     Dosage: FREQUENCY TEXT: DAILY
     Route: 048
     Dates: start: 20230522
  39. EUTHYROX [Concomitant]
     Active Substance: LEVOTHYROXINE SODIUM
     Indication: Product used for unknown indication
     Dosage: START DATE TEXT: UNKNOWN?FREQUENCY TEXT: DAILY
     Route: 048
     Dates: end: 20230516
  40. METFORMIN [Concomitant]
     Active Substance: METFORMIN HYDROCHLORIDE
     Indication: Product used for unknown indication
     Dosage: FREQUENCY TEXT: TWICE PER DAY
     Route: 048
     Dates: start: 20230610
  41. METFORMIN [Concomitant]
     Active Substance: METFORMIN HYDROCHLORIDE
     Indication: Product used for unknown indication
     Route: 048
     Dates: end: 20230609
  42. LENDORM [Concomitant]
     Active Substance: BROTIZOLAM
     Indication: Product used for unknown indication
     Dosage: FREQUENCY TEXT: DAILY
     Route: 048
     Dates: start: 20230421
  43. CANCIDAS [Concomitant]
     Active Substance: CASPOFUNGIN ACETATE
     Indication: Product used for unknown indication
     Dosage: FREQUENCY TEXT: DAILY
     Route: 042
     Dates: start: 20230524, end: 20230524
  44. CANCIDAS [Concomitant]
     Active Substance: CASPOFUNGIN ACETATE
     Indication: Product used for unknown indication
     Dosage: FREQUENCY TEXT: DAILY
     Route: 042
     Dates: start: 20230525
  45. PRIVIGEN [Concomitant]
     Active Substance: HUMAN IMMUNOGLOBULIN G
     Indication: Product used for unknown indication
     Dosage: FREQUENCY TEXT: DAILY
     Route: 042
     Dates: start: 20230613
  46. PRIVIGEN [Concomitant]
     Active Substance: HUMAN IMMUNOGLOBULIN G
     Indication: Product used for unknown indication
     Dosage: FREQUENCY TEXT: DAILY
     Route: 042
     Dates: start: 20230603, end: 20230604
  47. DESLORATADINE [Concomitant]
     Active Substance: DESLORATADINE
     Indication: Product used for unknown indication
     Dosage: FREQUENCY TEXT: BID/TWICE PER DAY?START DATE TEXT: UNKNOWN
     Dates: end: 20230512
  48. AZACITIDINE [Concomitant]
     Active Substance: AZACITIDINE
     Indication: Product used for unknown indication
     Dosage: FREQUENCY TEXT: STANDARD DOSE?AZACITIDIN
     Dates: start: 20230426, end: 20230504
  49. AZACITIDINE [Concomitant]
     Active Substance: AZACITIDINE
     Indication: Product used for unknown indication
     Dosage: FREQUENCY TEXT: STANDARD DOSAGE?AZACITIDIN
     Dates: start: 20230526, end: 20230606
  50. PANCRELIPASE [Concomitant]
     Active Substance: PANCRELIPASE
     Indication: Product used for unknown indication
     Dosage: FREQUENCY TEXT: TID 1-1-1?START DATE TEXT: UNKNOWN
     Route: 048
  51. BETAMETHASONE DIPROPIONATE\GENTAMICIN SULFATE [Concomitant]
     Active Substance: BETAMETHASONE DIPROPIONATE\GENTAMICIN SULFATE
     Indication: Product used for unknown indication
     Dosage: FREQUENCY TEXT: WHEN NEEDED
     Route: 062
     Dates: start: 20230514
  52. CEFEPIME HYDROCHLORIDE [Concomitant]
     Active Substance: CEFEPIME HYDROCHLORIDE
     Indication: Product used for unknown indication
     Dosage: TIME INTERVAL: 0.33333333 DAYS: FREQUENCY TEXT: THREE TIMES PER DAY
     Dates: start: 20230519, end: 20230520
  53. CEFEPIME HYDROCHLORIDE [Concomitant]
     Active Substance: CEFEPIME HYDROCHLORIDE
     Indication: Product used for unknown indication
     Dosage: TIME INTERVAL: 0.33333333 DAYS: FREQUENCY TEXT: TID/3 X DAY
     Dates: start: 20230507, end: 20230512
  54. AMPHOTERICIN B [Concomitant]
     Active Substance: AMPHOTERICIN B
     Indication: Product used for unknown indication
     Dosage: TIME INTERVAL: 0.33333333 DAYS: SUSPENSION?FREQUENCY TEXT: 3 TIMES PER DAY
     Route: 062
     Dates: start: 20230420
  55. DIPYRONE [Concomitant]
     Active Substance: DIPYRONE
     Indication: Product used for unknown indication
     Dosage: TIME INTERVAL: 0.33333333 DAYS: FREQUENCY TEXT: THREE TIME PER DAY
     Route: 048
     Dates: start: 20230612, end: 20230612
  56. DIPYRONE [Concomitant]
     Active Substance: DIPYRONE
     Indication: Product used for unknown indication
     Dosage: START DATE: 12 JUN 2023?FREQUENCY TEXT: DAILY
  57. DECODERM COMP [Concomitant]
     Indication: Product used for unknown indication
     Dosage: DECODERM COMPOSITUM?FREQUENCY TEXT: TWICE PER DAY
     Dates: start: 20230429, end: 20230517
  58. DIPHENHYDRAMINE HYDROCHLORIDE [Concomitant]
     Active Substance: DIPHENHYDRAMINE HYDROCHLORIDE
     Indication: Product used for unknown indication
     Dosage: 1A DIBONDRIN?FREQUENCY TEXT: DAILY
     Dates: start: 20230526, end: 20230526
  59. DIPHENHYDRAMINE HYDROCHLORIDE [Concomitant]
     Active Substance: DIPHENHYDRAMINE HYDROCHLORIDE
     Indication: Product used for unknown indication
     Dosage: 1A DIBONDRIN?FREQUENCY TEXT: DAILY
     Dates: start: 20230604, end: 20230604
  60. DIPHENHYDRAMINE HYDROCHLORIDE [Concomitant]
     Active Substance: DIPHENHYDRAMINE HYDROCHLORIDE
     Indication: Product used for unknown indication
     Dosage: 1A DIBONDRIN?FREQUENCY TEXT: DAILY
     Dates: start: 20230525, end: 20230525
  61. DIPHENHYDRAMINE HYDROCHLORIDE [Concomitant]
     Active Substance: DIPHENHYDRAMINE HYDROCHLORIDE
     Indication: Product used for unknown indication
     Dosage: 1A DIBONDRIN?FREQUENCY TEXT: DAILY
     Dates: start: 20230528, end: 20230528
  62. ALLOPURINOL [Concomitant]
     Active Substance: ALLOPURINOL
     Indication: Product used for unknown indication
     Dosage: FREQUENCY TEXT: DAILY
     Dates: start: 20230420, end: 20230520
  63. POTASSIUM CHLORIDE [Concomitant]
     Active Substance: POTASSIUM CHLORIDE
     Indication: Product used for unknown indication
     Dosage: FREQUENCY TEXT: TWICE PER DAY
     Route: 048
     Dates: start: 20230611
  64. POTASSIUM CHLORIDE [Concomitant]
     Active Substance: POTASSIUM CHLORIDE
     Indication: Product used for unknown indication
     Dosage: FREQUENCY TEXT: TWICE PER DAY
     Route: 048
     Dates: start: 20230606, end: 20230607
  65. VANCOMYCIN [Concomitant]
     Active Substance: VANCOMYCIN
     Indication: Product used for unknown indication
     Dosage: TIME INTERVAL: AS NECESSARY: FREQUENCY TEXT: WHEN NEEDED
     Route: 042
     Dates: start: 20230602
  66. AVIBACTAM SODIUM\CEFTAZIDIME [Concomitant]
     Active Substance: AVIBACTAM SODIUM\CEFTAZIDIME
     Indication: Product used for unknown indication
     Dosage: FREQUENCY TEXT: DAILY
     Route: 042
     Dates: start: 20230609
  67. HYDROMORPHONE HYDROCHLORIDE [Concomitant]
     Active Substance: HYDROMORPHONE HYDROCHLORIDE
     Indication: Product used for unknown indication
     Dosage: TIME INTERVAL: AS NECESSARY: FREQUENCY TEXT: WHEN NEEDED
     Route: 048
     Dates: start: 20230602, end: 20230611
  68. HYDROMORPHONE HYDROCHLORIDE [Concomitant]
     Active Substance: HYDROMORPHONE HYDROCHLORIDE
     Indication: Product used for unknown indication
     Dosage: TIME INTERVAL: AS NECESSARY: FREQUENCY TEXT: WHEN NEEDED?LAST ADMIN DATE: 11 JUN 2023
     Route: 048
     Dates: start: 20230521
  69. HYDROMORPHONE HYDROCHLORIDE [Concomitant]
     Active Substance: HYDROMORPHONE HYDROCHLORIDE
     Indication: Product used for unknown indication
     Dosage: FREQUENCY TEXT: DAILY
     Route: 042
     Dates: start: 20230612
  70. HYDROMORPHONE HYDROCHLORIDE [Concomitant]
     Active Substance: HYDROMORPHONE HYDROCHLORIDE
     Indication: Product used for unknown indication
     Dosage: FREQUENCY TEXT: TWICE PER DAY
     Route: 048
     Dates: start: 20230612, end: 20230612
  71. HYDROMORPHONE HYDROCHLORIDE [Concomitant]
     Active Substance: HYDROMORPHONE HYDROCHLORIDE
     Indication: Product used for unknown indication
     Dosage: TIME INTERVAL: AS NECESSARY: FREQUENCY TEXT: WHEN NEEDED
     Route: 048
     Dates: start: 20230612
  72. HYDROMORPHONE HYDROCHLORIDE [Concomitant]
     Active Substance: HYDROMORPHONE HYDROCHLORIDE
     Indication: Product used for unknown indication
     Dosage: FREQUENCY TEXT: AS REQUIRED??LAST ADMIN DATE: 11 JUN 2023
     Route: 048
     Dates: start: 20230610
  73. ZOFRAN [Concomitant]
     Active Substance: ONDANSETRON HYDROCHLORIDE
     Indication: Product used for unknown indication
     Dosage: TIME INTERVAL: AS NECESSARY: FREQUENCY TEXT: WHEN NEEDED
     Route: 048
     Dates: start: 20230526
  74. VALACYCLOVIR HYDROCHLORIDE [Concomitant]
     Active Substance: VALACYCLOVIR HYDROCHLORIDE
     Indication: Product used for unknown indication
     Dosage: FREQUENCY TEXT: DAILY
     Route: 048
     Dates: start: 20230430
  75. LASIX [Concomitant]
     Active Substance: FUROSEMIDE
     Indication: Product used for unknown indication
     Dosage: FREQUENCY TEXT: DAILY
     Route: 048
     Dates: start: 20230522, end: 20230523
  76. LASIX [Concomitant]
     Active Substance: FUROSEMIDE
     Indication: Product used for unknown indication
     Dosage: FREQUENCY TEXT: DAILY
     Route: 042
     Dates: start: 20230603
  77. LASIX [Concomitant]
     Active Substance: FUROSEMIDE
     Indication: Product used for unknown indication
     Dosage: FREQUENCY TEXT: DAILY
     Route: 042
     Dates: start: 20230520, end: 20230521
  78. LASIX [Concomitant]
     Active Substance: FUROSEMIDE
     Indication: Product used for unknown indication
     Dates: start: 20230527, end: 20230601
  79. LASIX [Concomitant]
     Active Substance: FUROSEMIDE
     Indication: Product used for unknown indication
     Dates: start: 20230524, end: 20230526
  80. Kalioral [Concomitant]
     Indication: Product used for unknown indication
     Dosage: FREQUENCY TEXT: TWICE PER DAY
     Dates: start: 20230609, end: 20230610
  81. XARELTO [Concomitant]
     Active Substance: RIVAROXABAN
     Indication: Product used for unknown indication
     Dosage: FREQUENCY TEXT: DAILY
     Dates: start: 20230521, end: 20230522
  82. SODIUM CHLORIDE [Concomitant]
     Active Substance: SODIUM CHLORIDE
     Indication: Product used for unknown indication
     Dosage: NACL 0.9%?FREQUENCY TEXT: DAILY
     Dates: start: 20230506, end: 20230512
  83. AMLODIPINE\VALSARTAN [Concomitant]
     Active Substance: AMLODIPINE\VALSARTAN
     Indication: Product used for unknown indication
     Dosage: 5/80MG?AMLODIPIN/VALSARTAN KRKA?START DATE TEXT: UNKNOWN?FREQUENCY TEXT: DAILY
     Dates: end: 20230629
  84. CEFTRIAXONE [Concomitant]
     Active Substance: CEFTRIAXONE\CEFTRIAXONE SODIUM
     Indication: Product used for unknown indication
     Dosage: FREQUENCY TEXT: DAILY
     Dates: start: 20230602, end: 20230609
  85. TRIMETHOPRIM [Concomitant]
     Active Substance: TRIMETHOPRIM
     Indication: Product used for unknown indication
     Dosage: 1600/320 MG
     Dates: start: 20230501
  86. SEVELAMER [Concomitant]
     Active Substance: SEVELAMER
     Indication: Product used for unknown indication
     Dosage: TIME INTERVAL: 0.33333333 DAYS: FREQUENCY TEXT: 3 TIMES PER DAY
     Dates: start: 20230427, end: 20230502
  87. ELOMEL [Concomitant]
     Indication: Product used for unknown indication
     Dosage: FIRST ADMIN DATE: 20 APR 2023?FREQUENCY TEXT: DAILY
     Dates: end: 20230506
  88. ELOMEL [Concomitant]
     Indication: Product used for unknown indication
     Dosage: FREQUENCY TEXT: DAILY
     Dates: start: 20230604, end: 20230605
  89. ELOMEL [Concomitant]
     Indication: Product used for unknown indication
     Dosage: FREQUENCY TEXT: DAILY
     Dates: start: 20230426, end: 20230426
  90. TYGACIL [Concomitant]
     Active Substance: TIGECYCLINE
     Indication: Product used for unknown indication
     Dosage: FIRST ADMIN DATE: 27 MAY 2023?LAST ADMIN DATE: 01 JUN 2023?FREQUENCY TEXT: TWICE IN THE DAY
  91. TYGACIL [Concomitant]
     Active Substance: TIGECYCLINE
     Indication: Product used for unknown indication
     Dosage: FREQUENCY TEXT: DAILY
     Dates: start: 20230527, end: 20230527
  92. TYGACIL [Concomitant]
     Active Substance: TIGECYCLINE
     Indication: Product used for unknown indication
     Dosage: FREQUENCY TEXT: TWICE IN THE DAY
     Dates: start: 20230528, end: 20230601
  93. BETAMETHASONE DIPROPIONATE [Concomitant]
     Active Substance: BETAMETHASONE DIPROPIONATE
     Indication: Product used for unknown indication
     Dosage: TIME INTERVAL: AS NECESSARY: FREQUENCY TEXT: WHEN NEEDED
     Dates: start: 20230424, end: 20230517
  94. PANTOPRAZOLE SODIUM [Concomitant]
     Active Substance: PANTOPRAZOLE SODIUM
     Indication: Product used for unknown indication
     Dosage: FREQUENCY TEXT: DAILY
     Dates: end: 20230609
  95. Novalgin [Concomitant]
     Indication: Product used for unknown indication
     Dosage: FREQUENCY TEXT: DAILY?FIRST ADMIN DATE: 20 MAY 2023
     Dates: end: 20230521
  96. Novalgin [Concomitant]
     Indication: Product used for unknown indication
     Dosage: FREQUENCY TEXT: 3 TIMES PER DAY
     Dates: start: 20230504, end: 20230520
  97. AMIKIN [Concomitant]
     Active Substance: AMIKACIN SULFATE
     Indication: Product used for unknown indication
     Dosage: FREQUENCY TEXT: TWICE PER DAY
     Dates: start: 20230528, end: 20230602
  98. LOPERAMIDE HYDROCHLORIDE [Concomitant]
     Active Substance: LOPERAMIDE HYDROCHLORIDE
     Indication: Product used for unknown indication
     Dosage: TIME INTERVAL: AS NECESSARY: FREQUENCY TEXT: WHEN NEEDED
     Dates: start: 20230513, end: 20230513
  99. LOPERAMIDE HYDROCHLORIDE [Concomitant]
     Active Substance: LOPERAMIDE HYDROCHLORIDE
     Indication: Product used for unknown indication
     Dosage: FREQUENCY TEXT: DAILY
     Dates: start: 20230525, end: 20230525
  100. LOPERAMIDE HYDROCHLORIDE [Concomitant]
     Active Substance: LOPERAMIDE HYDROCHLORIDE
     Indication: Product used for unknown indication
     Dosage: FREQUENCY TEXT: DAILY
     Dates: start: 20230517, end: 20230517
  101. LOPERAMIDE HYDROCHLORIDE [Concomitant]
     Active Substance: LOPERAMIDE HYDROCHLORIDE
     Indication: Product used for unknown indication
     Dosage: FREQUENCY TEXT: DAILY
     Dates: start: 20230507, end: 20230507
  102. PANTOPRAZOLE SODIUM [Concomitant]
     Active Substance: PANTOPRAZOLE SODIUM
     Indication: Product used for unknown indication
     Dosage: 1A PANTOPRAZOL?FREQUENCY TEXT: DAILY
     Dates: start: 20230609
  103. DICLOFENAC [Concomitant]
     Active Substance: DICLOFENAC
     Indication: Product used for unknown indication
     Dosage: TIME INTERVAL: AS NECESSARY: FREQUENCY TEXT: WHEN NEEDED
     Dates: start: 20230513, end: 20230521
  104. CLINDAMYCIN [Concomitant]
     Active Substance: CLINDAMYCIN
     Indication: Product used for unknown indication
     Dosage: FREQUENCY TEXT: DAILY
     Dates: start: 20230513, end: 20230513
  105. CLINDAMYCIN [Concomitant]
     Active Substance: CLINDAMYCIN
     Indication: Product used for unknown indication
     Dosage: TIME INTERVAL: 0.33333333 DAYS: FREQUENCY TEXT: 3 TIMES PER DAY?FIRST ADMIN DATE: 13 MAY 2023
     Dates: end: 20230515
  106. Postaconazol [Concomitant]
     Indication: Product used for unknown indication
     Dosage: FREQUENCY TEXT: DAILY
     Dates: start: 20230520, end: 20230524
  107. LINEZOLID [Concomitant]
     Active Substance: LINEZOLID
     Indication: Product used for unknown indication
     Dosage: FREQUENCY TEXT: TWICE PER DAY
     Dates: start: 20230505, end: 20230512
  108. LINEZOLID [Concomitant]
     Active Substance: LINEZOLID
     Indication: Product used for unknown indication
     Dates: start: 20230519, end: 20230524
  109. VITAMINS [Concomitant]
     Active Substance: VITAMINS
     Indication: Product used for unknown indication
     Dosage: 1A SOLUVIT?FREQUENCY TEXT: DAILY
     Dates: start: 20230513, end: 20230513
  110. MEROPENEM [Concomitant]
     Active Substance: MEROPENEM
     Indication: Product used for unknown indication
     Dosage: TIME INTERVAL: 0.33333333 DAYS: FREQUENCY TEXT: 3 TIMES PER DAY
     Dates: start: 20230514, end: 20230518
  111. MEROPENEM [Concomitant]
     Active Substance: MEROPENEM
     Indication: Product used for unknown indication
     Dosage: TIME INTERVAL: 0.33333333 DAYS: FREQUENCY TEXT: 3 TIMES PER DAY
     Dates: start: 20230503, end: 20230506
  112. CUBICIN [Concomitant]
     Active Substance: DAPTOMYCIN
     Indication: Product used for unknown indication
     Dosage: FREQUENCY TEXT: DAILY
     Dates: start: 20230515, end: 20230518
  113. VENOBENE [Concomitant]
     Indication: Product used for unknown indication
     Dosage: TIME INTERVAL: AS NECESSARY: FREQUENCY TEXT: WHEN NEEDED
     Dates: start: 20230428, end: 20230521

REACTIONS (17)
  - Leukopenia [Recovered/Resolved]
  - Nausea [Recovered/Resolved]
  - Infection [Not Recovered/Not Resolved]
  - Thrombocytopenia [Recovered/Resolved]
  - Leukopenia [Unknown]
  - Diarrhoea [Recovered/Resolved]
  - Peripheral swelling [Not Recovered/Not Resolved]
  - False positive investigation result [Not Recovered/Not Resolved]
  - Oedema [Not Recovered/Not Resolved]
  - Haematoma [Recovered/Resolved]
  - Haemorrhagic diathesis [Not Recovered/Not Resolved]
  - Pain [Not Recovered/Not Resolved]
  - Lung disorder [Not Recovered/Not Resolved]
  - Hyponatraemia [Not Recovered/Not Resolved]
  - Thrombophlebitis [Unknown]
  - Leukopenia [Unknown]
  - Thrombocytopenia [Not Recovered/Not Resolved]

NARRATIVE: CASE EVENT DATE: 20230101
